FAERS Safety Report 18188898 (Version 1)
Quarter: 2020Q3

REPORT INFORMATION
  Report Type: Spontaneous
  Country: US (occurrence: US)
  Receive Date: 20200824
  Receipt Date: 20200824
  Transmission Date: 20201103
  Serious: Yes (Other)
  Sender: FDA-Public Use
  Company Number: NVSC2020US232622

PATIENT

DRUGS (2)
  1. TRAMETINIB [Suspect]
     Active Substance: TRAMETINIB
     Indication: HEPATOCELLULAR CARCINOMA
     Dosage: 1.5 MG, QD (1 AND 1.5 MILLIGRAMS (MG) FLAT DOSE, DAILY)
     Route: 048
  2. SORAFENIB [Suspect]
     Active Substance: SORAFENIB
     Indication: HEPATOCELLULAR CARCINOMA
     Dosage: 400 MG, QD (200 AND 400 MILLIGRAMS (MG) FLAT DOSE, DAILY)
     Route: 048

REACTIONS (3)
  - Hypertension [Unknown]
  - Toxicity to various agents [Unknown]
  - Product use in unapproved indication [Unknown]
